FAERS Safety Report 6412081-4 (Version None)
Quarter: 2009Q4

REPORT INFORMATION
  Report Type: 
  Country: None (occurrence: None)
  Receive Date: 20091020
  Receipt Date: 20091007
  Transmission Date: 20100525
  Serious: Yes (Death, Other)
  Sender: FDA-Public Use
  Company Number: 2009AC000133

PATIENT
  Sex: Male

DRUGS (28)
  1. DIGOXIN [Suspect]
     Dosage: 0.125 MG; QD; PO
     Route: 048
  2. SOLU-MEDROL [Concomitant]
  3. ROCEPHIN [Concomitant]
  4. ZOCOR [Concomitant]
  5. LOPRESSOR [Concomitant]
  6. XANAX [Concomitant]
  7. LISINOPRIL [Concomitant]
  8. LEVOPHED [Concomitant]
  9. PLAVIX [Concomitant]
  10. ADVAIR DISKUS 100/50 [Concomitant]
  11. PROTONIX [Concomitant]
  12. ALTROVENT [Concomitant]
  13. ASPIRIN [Concomitant]
  14. PREDNISONE FORTE EYE DROPS [Concomitant]
  15. PREDNISONE [Concomitant]
  16. SPIRIVA [Concomitant]
  17. IMDUR [Concomitant]
  18. XOPONEX [Concomitant]
  19. K-DUR [Concomitant]
  20. LASIX [Concomitant]
  21. DECADRON [Concomitant]
  22. DIAMOX SRC [Concomitant]
  23. SATOLOL [Concomitant]
  24. OXYGEN [Concomitant]
  25. SINGULAIR [Concomitant]
  26. CEFTIN [Concomitant]
  27. PRILOSEC [Concomitant]
  28. IMDUR [Concomitant]

REACTIONS (11)
  - ATRIAL FIBRILLATION [None]
  - CARDIO-RESPIRATORY ARREST [None]
  - ECONOMIC PROBLEM [None]
  - EMOTIONAL DISTRESS [None]
  - FAMILY STRESS [None]
  - HAEMOPTYSIS [None]
  - MULTIPLE INJURIES [None]
  - PAIN [None]
  - PARTNER STRESS [None]
  - SOCIAL PROBLEM [None]
  - TACHYCARDIA [None]
